FAERS Safety Report 7153357-5 (Version None)
Quarter: 2010Q4

REPORT INFORMATION
  Report Type: 
  Country: None (occurrence: None)
  Receive Date: 20101213
  Receipt Date: 20101202
  Transmission Date: 20110411
  Serious: Yes (Other)
  Sender: FDA-Public Use
  Company Number: FR-GENZYME-CERZ-1001370

PATIENT
  Sex: Female

DRUGS (4)
  1. CEREZYME [Suspect]
     Indication: GAUCHER'S DISEASE
     Dosage: UNK UNK, Q2W
     Route: 042
     Dates: start: 19970926
  2. GESTODENE AND ETHINYL ESTRADIOL [Concomitant]
     Indication: PRODUCT USED FOR UNKNOWN INDICATION
     Dosage: UNK
     Route: 065
  3. APRANAX [Concomitant]
     Indication: PAIN
     Dosage: UNK
     Route: 065
  4. CODOLIPRANE [Concomitant]
     Indication: PAIN
     Dosage: UNK
     Route: 065

REACTIONS (1)
  - MULTIPLE SCLEROSIS [None]
